FAERS Safety Report 9926051 (Version 2)
Quarter: 2014Q1

REPORT INFORMATION
  Report Type: Spontaneous
  Country: US (occurrence: US)
  Receive Date: 20140226
  Receipt Date: 20140303
  Transmission Date: 20141002
  Serious: Yes (Other)
  Sender: FDA-Public Use
  Company Number: US-ELI_LILLY_AND_COMPANY-US201402006266

PATIENT
  Sex: Female

DRUGS (10)
  1. HUMALOG LISPRO [Suspect]
     Indication: TYPE 2 DIABETES MELLITUS
     Dosage: 35 U, TID
     Route: 065
  2. HUMALOG LISPRO [Suspect]
     Dosage: 35 U, TID
     Route: 065
  3. LANTUS [Concomitant]
  4. METFORMIN [Concomitant]
  5. LEVOTHYROXINE [Concomitant]
  6. LISINOPRIL [Concomitant]
  7. SIMVASTATIN [Concomitant]
  8. ASPIRIN [Concomitant]
  9. MULTIVITAMIN                       /00831701/ [Concomitant]
  10. EYE DROPS [Concomitant]

REACTIONS (4)
  - Cataract [Unknown]
  - Glaucoma [Unknown]
  - Weight increased [Unknown]
  - Breast enlargement [Unknown]
